FAERS Safety Report 8508724-1 (Version None)
Quarter: 2012Q3

REPORT INFORMATION
  Report Type: 
  Country: None (occurrence: None)
  Receive Date: 20120713
  Receipt Date: 20120710
  Transmission Date: 20120928
  Serious: Yes (Death)
  Sender: FDA-Public Use
  Company Number: US-CELGENEUS-163-21880-12052775

PATIENT
  Sex: Female

DRUGS (9)
  1. DEXAMETHASONE [Concomitant]
     Dosage: 4 MILLIGRAM
     Route: 065
  2. DIAZIDE [Concomitant]
     Dosage: 37.5 TO 25
     Route: 065
  3. HYDROCODONE/ACETOMINOPHEN [Concomitant]
     Dosage: 5MG/500MG
     Route: 065
  4. PROCHLORPERAZINE MALEATE [Concomitant]
     Indication: NAUSEA
     Dosage: 10 MILLIGRAM
     Route: 065
  5. REVLIMID [Suspect]
     Indication: MULTIPLE MYELOMA
     Dosage: 10 MILLIGRAM
     Route: 048
     Dates: start: 20120329
  6. REVLIMID [Suspect]
     Dosage: 10 MILLIGRAM
     Route: 048
     Dates: start: 20120420, end: 20120512
  7. AMLODIPINE BES/OLMESARTAN [Concomitant]
     Dosage: 5MG-20MG
     Route: 065
  8. ANTIVERT [Concomitant]
     Dosage: 25 MILLIGRAM
     Route: 065
  9. BENADRYL [Concomitant]
     Route: 065

REACTIONS (1)
  - CARDIAC ARREST [None]
